FAERS Safety Report 7082578-5 (Version None)
Quarter: 2010Q3

REPORT INFORMATION
  Report Type: 
  Country: None (occurrence: None)
  Receive Date: 20100929
  Receipt Date: 20100716
  Transmission Date: 20110219
  Serious: No
  Sender: FDA-Public Use
  Company Number: US-WYE-H16295710

PATIENT
  Age: 66 Year
  Sex: Female
  Weight: 78.09 kg

DRUGS (11)
  1. PRISTIQ [Suspect]
     Indication: DEPRESSION
     Dosage: 50 MG 1X PER 1 DAY
     Dates: start: 20100501
  2. ST. JOHN'S WORT (HYPERICUM PERFORATUM,) [Suspect]
     Dosage: 1 CAPSULE 2X/DAILY
     Dates: start: 20100501, end: 20100715
  3. ASPIRIN [Concomitant]
  4. PROZAC [Concomitant]
  5. DILTIAZEM [Concomitant]
  6. METOPROLOL [Concomitant]
  7. SIMVASTATIN [Concomitant]
  8. VITAMIN E [Concomitant]
  9. MELATONIN [Concomitant]
  10. BLACK COHOSH (CIMICIFUGA) [Concomitant]
  11. OMEPRAZOLE [Concomitant]

REACTIONS (4)
  - CONDITION AGGRAVATED [None]
  - MEDICATION RESIDUE [None]
  - PANIC ATTACK [None]
  - PROTHROMBIN TIME SHORTENED [None]
